FAERS Safety Report 8523053-8 (Version None)
Quarter: 2012Q3

REPORT INFORMATION
  Report Type: 
  Country: None (occurrence: None)
  Receive Date: 20120720
  Receipt Date: 20120711
  Transmission Date: 20120928
  Serious: Yes (Hospitalization)
  Sender: FDA-Public Use
  Company Number: ME-ROCHE-1084349

PATIENT
  Sex: Male
  Weight: 86.3 kg

DRUGS (8)
  1. RANISAN [Concomitant]
     Route: 048
     Dates: start: 19960101
  2. CAPTOPRIL [Concomitant]
     Indication: HYPERTENSION
     Dosage: LOPRIL H
     Route: 048
     Dates: start: 20110101
  3. SULFASALAZINE [Suspect]
     Indication: RHEUMATOID ARTHRITIS
     Route: 048
     Dates: start: 19960101
  4. CAPTOPRIL [Concomitant]
     Route: 048
     Dates: start: 20110101
  5. METHOTREXATE [Concomitant]
     Indication: RHEUMATOID ARTHRITIS
     Route: 048
     Dates: start: 20120710
  6. DICLOFENAC [Suspect]
     Indication: RHEUMATOID ARTHRITIS
     Route: 048
     Dates: end: 20120702
  7. FOLAN [Concomitant]
     Indication: WHITE BLOOD CELL COUNT DECREASED
     Route: 048
     Dates: start: 20110101
  8. ACTEMRA [Suspect]
     Indication: RHEUMATOID ARTHRITIS
     Route: 042
     Dates: start: 20120507

REACTIONS (1)
  - PANCYTOPENIA [None]
